FAERS Safety Report 7779792-X (Version None)
Quarter: 2011Q3

REPORT INFORMATION
  Report Type: 
  Country: None (occurrence: None)
  Receive Date: 20110927
  Receipt Date: 20110915
  Transmission Date: 20111222
  Serious: Yes (Hospitalization)
  Sender: FDA-Public Use
  Company Number: IT-JNJFOC-20110904167

PATIENT
  Age: 39 Year
  Sex: Male

DRUGS (2)
  1. REMICADE [Suspect]
     Route: 042
     Dates: start: 20090306, end: 20110715
  2. REMICADE [Suspect]
     Indication: ANKYLOSING SPONDYLITIS
     Route: 042
     Dates: start: 20110803, end: 20110803

REACTIONS (6)
  - CHEST PAIN [None]
  - INFUSION RELATED REACTION [None]
  - COLD SWEAT [None]
  - MYOCLONUS [None]
  - MALAISE [None]
  - HYPERHIDROSIS [None]
